FAERS Safety Report 22089702 (Version 1)
Quarter: 2023Q1

REPORT INFORMATION
  Report Type: Spontaneous
  Country: US (occurrence: None)
  Receive Date: 20230310
  Receipt Date: 20230310
  Transmission Date: 20230418
  Serious: No
  Sender: FDA-Public Use
  Company Number: None

PATIENT
  Age: 84 Year
  Sex: Male
  Weight: 86.18 kg

DRUGS (13)
  1. HUMIRA [Suspect]
     Active Substance: ADALIMUMAB
     Indication: Senile osteoporosis
     Dosage: FREQUENCY : AS DIRECTED;?
     Route: 048
  2. BETAMETHASONE DIPROPIONATE [Concomitant]
     Active Substance: BETAMETHASONE DIPROPIONATE
  3. CEFADROXIL [Concomitant]
     Active Substance: CEFADROXIL
  4. CLOTRIMAZOLE [Concomitant]
     Active Substance: CLOTRIMAZOLE
  5. FOLIC ACID [Concomitant]
     Active Substance: FOLIC ACID
  6. METHOTREXATE [Concomitant]
     Active Substance: METHOTREXATE
  7. MUPIROCIN [Concomitant]
     Active Substance: MUPIROCIN
  8. MYRBETRIQ [Concomitant]
     Active Substance: MIRABEGRON
  9. NYSTATIN [Concomitant]
     Active Substance: NYSTATIN
  10. OLOPATADINE HYDROCHLORIDE [Concomitant]
     Active Substance: OLOPATADINE HYDROCHLORIDE
  11. PREDNISONE [Concomitant]
     Active Substance: PREDNISONE
  12. SINGULAIR [Concomitant]
     Active Substance: MONTELUKAST SODIUM
  13. ZITHROMAX [Concomitant]
     Active Substance: AZITHROMYCIN DIHYDRATE

REACTIONS (3)
  - Post procedural infection [None]
  - Herpes zoster [None]
  - Therapy interrupted [None]
